FAERS Safety Report 7086926-1 (Version None)
Quarter: 2010Q4

REPORT INFORMATION
  Report Type: 
  Country: None (occurrence: None)
  Receive Date: 20101106
  Receipt Date: 20101013
  Transmission Date: 20110411
  Serious: No
  Sender: FDA-Public Use
  Company Number: US-WYE-H17410510

PATIENT
  Sex: Female
  Weight: 61.74 kg

DRUGS (4)
  1. PREMARIN [Suspect]
     Indication: VULVOVAGINAL DRYNESS
     Dosage: 1 GRAM TWICE WEEKLY
     Route: 067
     Dates: start: 20100101, end: 20100827
  2. ZOLOFT [Concomitant]
  3. ZETIA [Concomitant]
  4. VIVELLE [Concomitant]

REACTIONS (2)
  - VULVOVAGINAL BURNING SENSATION [None]
  - VULVOVAGINAL DISCOMFORT [None]
